FAERS Safety Report 22033855 (Version 1)
Quarter: 2023Q1

REPORT INFORMATION
  Report Type: Spontaneous
  Country: US (occurrence: None)
  Receive Date: 20230222
  Receipt Date: 20230222
  Transmission Date: 20230417
  Serious: Yes (Other)
  Sender: FDA-Public Use
  Company Number: None

PATIENT
  Age: 24 Year
  Sex: Female
  Weight: 97.65 kg

DRUGS (2)
  1. LORYNA [Suspect]
     Active Substance: DROSPIRENONE\ETHINYL ESTRADIOL
     Indication: Premenstrual dysphoric disorder
     Dosage: FREQUENCY : DAILY;?
     Route: 048
     Dates: start: 20230211, end: 20230217
  2. Celexa Propanolol [Concomitant]

REACTIONS (3)
  - Affective disorder [None]
  - Inappropriate affect [None]
  - Suicidal ideation [None]

NARRATIVE: CASE EVENT DATE: 20230217
